FAERS Safety Report 9511392 (Version 1)
Quarter: 2013Q3

REPORT INFORMATION
  Report Type: Spontaneous
  Country: US (occurrence: US)
  Receive Date: 20130910
  Receipt Date: 20130910
  Transmission Date: 20140515
  Serious: Yes (Other)
  Sender: FDA-Public Use
  Company Number: US-BRISTOL-MYERS SQUIBB COMPANY-19247923

PATIENT
  Age: 78 Year
  Sex: Male
  Weight: 131.52 kg

DRUGS (6)
  1. ELIQUIS [Suspect]
     Indication: CARDIAC FLUTTER
     Dates: start: 2013
  2. LISINOPRIL [Concomitant]
     Dosage: 1/2 TABLET(12.5)
  3. METOPROLOL SUCCINATE [Concomitant]
  4. INSULIN [Concomitant]
     Dosage: 1DF:23 UNITS OF SLOW RELEASE INSULIN
  5. DONEPEZIL [Concomitant]
  6. OMEPRAZOLE [Concomitant]

REACTIONS (1)
  - Arthropathy [Unknown]
